FAERS Safety Report 6140975-6 (Version None)
Quarter: 2009Q1

REPORT INFORMATION
  Report Type: 
  Country: None (occurrence: None)
  Receive Date: 20090331
  Receipt Date: 20090317
  Transmission Date: 20090719
  Serious: Yes (Death)
  Sender: FDA-Public Use
  Company Number: 2009000823

PATIENT
  Age: 66 Year
  Sex: Male

DRUGS (2)
  1. ERLOTINIB (ERLOTINIB) (TABLET) (ERLOTINIB) [Suspect]
     Indication: NON-SMALL CELL LUNG CANCER
     Dosage: (150 MG, QD FOR 12 DAYS, EVERY 21 DAYS), ORAL
     Route: 048
     Dates: start: 20090206
  2. TAXOTERE [Suspect]
     Indication: NON-SMALL CELL LUNG CANCER
     Dosage: (160 MG, Q 21 DAYS), INTRAVENOUS
     Route: 042
     Dates: start: 20090130, end: 20090207

REACTIONS (2)
  - DYSPNOEA [None]
  - PULMONARY EMBOLISM [None]
